FAERS Safety Report 15255004 (Version 3)
Quarter: 2021Q2

REPORT INFORMATION
  Report Type: Spontaneous
  Country: IN (occurrence: IN)
  Receive Date: 20180808
  Receipt Date: 20210503
  Transmission Date: 20210716
  Serious: Yes (Other)
  Sender: FDA-Public Use
  Company Number: IN-GLENMARK PHARMACEUTICALS-2018GMK036888

PATIENT
  Age: 22 Year
  Sex: Male

DRUGS (4)
  1. LINEZOLID. [Suspect]
     Active Substance: LINEZOLID
     Indication: LIVER ABSCESS
     Dosage: 600 MG, BID
     Route: 048
  2. ITRACONAZOLE. [Concomitant]
     Active Substance: ITRACONAZOLE
     Indication: ANTIBIOTIC PROPHYLAXIS
     Dosage: 200 MG, QD
     Route: 065
  3. VANCOMYCIN [Concomitant]
     Active Substance: VANCOMYCIN
     Indication: LIVER ABSCESS
     Dosage: UNK
     Route: 042
  4. SULFAMETHOXAZOLE W/TRIMETHOPRIM [Concomitant]
     Active Substance: SULFAMETHOXAZOLE\TRIMETHOPRIM
     Indication: ANTIBIOTIC PROPHYLAXIS
     Dosage: 400 + 80 MG/DAY
     Route: 065

REACTIONS (6)
  - Product use in unapproved indication [Unknown]
  - Neuropathy peripheral [Unknown]
  - Toxicity to various agents [Unknown]
  - Blood lactic acid increased [Unknown]
  - Mitochondrial toxicity [Unknown]
  - Optic neuropathy [Recovered/Resolved]
